FAERS Safety Report 4733006-3 (Version None)
Quarter: 2005Q3

REPORT INFORMATION
  Report Type: 
  Country: None (occurrence: None)
  Receive Date: 20050801
  Receipt Date: 20050720
  Transmission Date: 20060218
  Serious: Yes (Hospitalization)
  Sender: FDA-Public Use
  Company Number: 2005104141

PATIENT
  Age: 81 Year
  Sex: Male

DRUGS (6)
  1. XANAX [Suspect]
     Indication: ILL-DEFINED DISORDER
     Dosage: (0.25 MG), ORAL
     Route: 048
     Dates: end: 20050421
  2. ANDROCUR (CYPROTERONE ACETATE) [Suspect]
     Indication: ILL-DEFINED DISORDER
     Dosage: ORAL
     Route: 048
     Dates: start: 20050401, end: 20050421
  3. EXELON [Suspect]
     Indication: ILL-DEFINED DISORDER
     Dosage: 2 DF , ORAL
     Route: 048
     Dates: end: 20050421
  4. TIAPRIDAL (TIAPRIDE) [Concomitant]
     Indication: ILL-DEFINED DISORDER
     Dosage: ORAL
     Route: 048
     Dates: start: 20050401, end: 20050421
  5. IMOVANE (ZOPICLONE) [Suspect]
     Indication: ILL-DEFINED DISORDER
     Dosage: ORAL
     Route: 048
     Dates: end: 20050421
  6. ARICEPT [Concomitant]

REACTIONS (2)
  - CONFUSIONAL STATE [None]
  - DEPRESSED LEVEL OF CONSCIOUSNESS [None]
